FAERS Safety Report 6507648-9 (Version None)
Quarter: 2009Q4

REPORT INFORMATION
  Report Type: 
  Country: None (occurrence: None)
  Receive Date: 20091221
  Receipt Date: 20091210
  Transmission Date: 20100525
  Serious: No
  Sender: FDA-Public Use
  Company Number: AU-ELI_LILLY_AND_COMPANY-AU200912002223

PATIENT
  Age: 39 Year
  Sex: Male

DRUGS (1)
  1. CYMBALTA [Suspect]
     Indication: DEPRESSION
     Dosage: 60 MG, UNKNOWN
     Route: 065

REACTIONS (3)
  - BLOOD BILIRUBIN INCREASED [None]
  - BURNING SENSATION [None]
  - HEPATIC FUNCTION ABNORMAL [None]
